FAERS Safety Report 6324494-X (Version None)
Quarter: 2009Q3

REPORT INFORMATION
  Report Type: 
  Country: None (occurrence: None)
  Receive Date: 20090824
  Receipt Date: 20090512
  Transmission Date: 20100115
  Serious: No
  Sender: FDA-Public Use
  Company Number: US-ABBOTT-09P-163-0573003-00

PATIENT
  Sex: Male

DRUGS (5)
  1. NIASPAN [Suspect]
     Indication: LOW DENSITY LIPOPROTEIN INCREASED
     Dates: start: 20090401
  2. NIASPAN [Suspect]
     Indication: BLOOD TRIGLYCERIDES INCREASED
  3. SIMVASTATIN [Concomitant]
     Indication: DRUG USE FOR UNKNOWN INDICATION
  4. FOSAMAX [Concomitant]
     Indication: DRUG USE FOR UNKNOWN INDICATION
     Route: 048
  5. ASPIRIN [Concomitant]
     Indication: DRUG USE FOR UNKNOWN INDICATION
     Route: 048

REACTIONS (3)
  - ABDOMINAL PAIN UPPER [None]
  - BACK PAIN [None]
  - MALAISE [None]
